FAERS Safety Report 16921931 (Version 1)
Quarter: 2019Q4

REPORT INFORMATION
  Report Type: Spontaneous
  Country: US (occurrence: US)
  Receive Date: 20191015
  Receipt Date: 20191015
  Transmission Date: 20200122
  Serious: Yes (Other)
  Sender: FDA-Public Use
  Company Number: US-NOVOPROD-689474

PATIENT
  Age: 55 Year
  Sex: Male

DRUGS (2)
  1. NOVOLIN R [Concomitant]
     Active Substance: INSULIN HUMAN
     Indication: PRODUCT USED FOR UNKNOWN INDICATION
     Dosage: SLIDING SCALE
     Route: 058
  2. NOVOLIN N [Suspect]
     Active Substance: INSULIN HUMAN
     Indication: PRODUCT USED FOR UNKNOWN INDICATION
     Dosage: 22 UNITS AM , SLIDING SCALE
     Route: 058

REACTIONS (5)
  - Abdominal pain upper [Unknown]
  - Product quality issue [Unknown]
  - Arthralgia [Unknown]
  - Myocardial infarction [Unknown]
  - Dizziness [Unknown]
